FAERS Safety Report 18393604 (Version 1)
Quarter: 2020Q4

REPORT INFORMATION
  Report Type: Spontaneous
  Country: JP (occurrence: JP)
  Receive Date: 20201016
  Receipt Date: 20201016
  Transmission Date: 20210114
  Serious: Yes (Hospitalization, Other)
  Sender: FDA-Public Use
  Company Number: NVSC2020JP276827

PATIENT
  Age: 19 Year
  Sex: Male

DRUGS (1)
  1. CLARITHROMYCIN. [Suspect]
     Active Substance: CLARITHROMYCIN
     Indication: ENTERITIS
     Dosage: UNK
     Route: 048

REACTIONS (3)
  - Kounis syndrome [Unknown]
  - Product use in unapproved indication [Unknown]
  - Chest pain [Unknown]
